FAERS Safety Report 8997822 (Version 1)
Quarter: 2013Q1

REPORT INFORMATION
  Report Type: Spontaneous
  Country: MX (occurrence: MX)
  Receive Date: 20130104
  Receipt Date: 20130104
  Transmission Date: 20140127
  Serious: Yes (Death)
  Sender: FDA-Public Use
  Company Number: MX-GLAXOSMITHKLINE-A1006623A

PATIENT
  Sex: Male

DRUGS (4)
  1. SERETIDE [Suspect]
     Indication: PRODUCT USED FOR UNKNOWN INDICATION
     Dosage: 2PUFF PER DAY
     Route: 055
     Dates: start: 2008, end: 201105
  2. EPAMIN [Concomitant]
  3. AMBROXOL [Concomitant]
  4. ISOSORBIDE [Concomitant]

REACTIONS (1)
  - Infarction [Fatal]
